FAERS Safety Report 19646519 (Version 2)
Quarter: 2021Q3

REPORT INFORMATION
  Report Type: Spontaneous
  Country: GB (occurrence: GB)
  Receive Date: 20210802
  Receipt Date: 20210810
  Transmission Date: 20211014
  Serious: Yes (Other)
  Sender: FDA-Public Use
  Company Number: GB-MYLANLABS-2020M1099970

PATIENT
  Age: 28 Year
  Sex: Male

DRUGS (3)
  1. CLOZARIL [Suspect]
     Active Substance: CLOZAPINE
     Indication: SCHIZOPHRENIA
     Dosage: UNK
     Dates: start: 20201130
  2. CLOZARIL [Suspect]
     Active Substance: CLOZAPINE
     Dosage: UNK
     Route: 048
     Dates: start: 20210107
  3. CLOZARIL [Suspect]
     Active Substance: CLOZAPINE
     Dosage: 25 MILLIGRAM, BID (MORNING AND NIGHT)
     Route: 048

REACTIONS (16)
  - Off label use [Unknown]
  - Blood fibrinogen decreased [Unknown]
  - Alanine aminotransferase increased [Recovered/Resolved]
  - Sedation [Unknown]
  - Blood creatinine increased [Recovered/Resolved]
  - White blood cell count decreased [Not Recovered/Not Resolved]
  - Neutrophil count decreased [Recovered/Resolved]
  - Activated partial thromboplastin time shortened [Recovered/Resolved]
  - Blood potassium increased [Recovered/Resolved]
  - Nausea [Unknown]
  - Mental impairment [Unknown]
  - Haematocrit increased [Recovered/Resolved]
  - Product dose omission issue [Recovered/Resolved]
  - Poor quality sleep [Unknown]
  - Aspartate aminotransferase increased [Unknown]
  - Eosinophil count decreased [Unknown]

NARRATIVE: CASE EVENT DATE: 20201217
